FAERS Safety Report 9693001 (Version 2)
Quarter: 2014Q2

REPORT INFORMATION
  Report Type: Spontaneous
  Country: US (occurrence: US)
  Receive Date: 20131118
  Receipt Date: 20140604
  Transmission Date: 20141212
  Serious: Yes (Hospitalization)
  Sender: FDA-Public Use
  Company Number: US-GALDERMA-US13003540

PATIENT
  Age: 45 Year
  Sex: Female

DRUGS (3)
  1. MIRVASO (BRIMONIDINE) TOPICAL GEL, 0.33% [Suspect]
     Indication: ROSACEA
     Dosage: 0.33%
     Route: 061
     Dates: start: 20131027, end: 20131028
  2. MIRVASO (BRIMONIDINE) TOPICAL GEL, 0.33% [Suspect]
     Route: 061
     Dates: start: 201311, end: 20131103
  3. SUDAFED (PSEUDOEPHEDRINE) [Suspect]
     Indication: NASOPHARYNGITIS
     Route: 048
     Dates: end: 20131028

REACTIONS (7)
  - Hypersensitivity [Unknown]
  - Throat tightness [Recovered/Resolved]
  - Eyelid oedema [Recovered/Resolved]
  - Malaise [Unknown]
  - Condition aggravated [Not Recovered/Not Resolved]
  - Erythema [Recovering/Resolving]
  - Skin burning sensation [Unknown]
